FAERS Safety Report 5320197-9 (Version None)
Quarter: 2007Q2

REPORT INFORMATION
  Report Type: 
  Country: None (occurrence: None)
  Receive Date: 20070509
  Receipt Date: 20070507
  Transmission Date: 20071010
  Serious: Yes (Other)
  Sender: FDA-Public Use
  Company Number: A0648565A

PATIENT
  Age: 46 Year
  Sex: Female

DRUGS (3)
  1. TYKERB [Suspect]
     Indication: BREAST CANCER
     Dosage: 1250MG PER DAY
     Route: 048
     Dates: start: 20070405
  2. ZOMETA [Concomitant]
  3. ABRAXANE [Concomitant]

REACTIONS (6)
  - BLOOD TEST NORMAL [None]
  - DIARRHOEA [None]
  - PLATELET ADHESIVENESS INCREASED [None]
  - PLATELET DISORDER [None]
  - RASH [None]
  - THERAPEUTIC RESPONSE UNEXPECTED [None]
